FAERS Safety Report 10263394 (Version 1)
Quarter: 2014Q2

REPORT INFORMATION
  Report Type: Spontaneous
  Country: TR (occurrence: TR)
  Receive Date: 20140626
  Receipt Date: 20140626
  Transmission Date: 20141212
  Serious: Yes (Death, Congenital Anomaly, Other)
  Sender: FDA-Public Use
  Company Number: PHHY2014TR076043

PATIENT
  Sex: Male

DRUGS (1)
  1. PAROXETINE SANDOZ [Suspect]
     Dosage: 20 MG DAILY, MATERNAL DOSE
     Route: 064

REACTIONS (15)
  - Cardiac arrest [Fatal]
  - Congenital pulmonary valve atresia [Unknown]
  - Small for dates baby [Unknown]
  - Mandibulofacial dysostosis [Unknown]
  - Hypertelorism of orbit [Unknown]
  - Exophthalmos congenital [Unknown]
  - Low set ears [Unknown]
  - External auditory canal atresia [Unknown]
  - Micrognathia [Unknown]
  - Choanal atresia [Unknown]
  - Deafness bilateral [Unknown]
  - Atrial septal defect [Unknown]
  - Ventricular septal defect [Unknown]
  - Respiratory distress [Unknown]
  - Foetal exposure during pregnancy [Unknown]
